FAERS Safety Report 13493963 (Version 2)
Quarter: 2017Q2

REPORT INFORMATION
  Report Type: Report from Study
  Country: None (occurrence: US)
  Receive Date: 20170427
  Receipt Date: 20170508
  Transmission Date: 20170830
  Serious: Yes (Other)
  Sender: FDA-Public Use
  Company Number: US-ABBVIE-17K-163-1952588-00

PATIENT
  Sex: Female
  Weight: 65.83 kg

DRUGS (1)
  1. HUMIRA [Suspect]
     Active Substance: ADALIMUMAB
     Indication: RHEUMATOID ARTHRITIS
     Route: 058

REACTIONS (7)
  - Spinal operation [Unknown]
  - Arthralgia [Not Recovered/Not Resolved]
  - Fall [Recovering/Resolving]
  - Joint swelling [Not Recovered/Not Resolved]
  - Bursitis [Recovered/Resolved]
  - Contusion [Recovered/Resolved]
  - Skin discolouration [Not Recovered/Not Resolved]

NARRATIVE: CASE EVENT DATE: 2017
